FAERS Safety Report 24544678 (Version 1)
Quarter: 2024Q4

REPORT INFORMATION
  Report Type: Spontaneous
  Country: US (occurrence: US)
  Receive Date: 20241024
  Receipt Date: 20241024
  Transmission Date: 20250114
  Serious: Yes (Hospitalization)
  Sender: MYLAN
  Company Number: US-MYLANLABS-2024M1096272

PATIENT
  Age: 38 Year
  Sex: Male

DRUGS (13)
  1. ESTRADIOL [Suspect]
     Active Substance: ESTRADIOL
     Indication: Transgender hormonal therapy
     Dosage: 2 MILLIGRAM
     Route: 048
  2. ESTRADIOL [Suspect]
     Active Substance: ESTRADIOL
     Dosage: 4 MILLIGRAM
     Route: 048
  3. ESTRADIOL [Suspect]
     Active Substance: ESTRADIOL
     Dosage: 3 MILLIGRAM
     Route: 048
  4. ESTRADIOL VALERATE [Suspect]
     Active Substance: ESTRADIOL VALERATE
     Indication: Transgender hormonal therapy
     Dosage: 4 MILLIGRAM, QW
     Route: 058
  5. VILOXAZINE [Concomitant]
     Active Substance: VILOXAZINE
     Indication: Attention deficit hyperactivity disorder
     Dosage: 400 MILLIGRAM, QD
     Route: 065
  6. CETIRIZINE [Concomitant]
     Active Substance: CETIRIZINE HYDROCHLORIDE
     Indication: Product used for unknown indication
     Dosage: 10 MILLIGRAM, QD
     Route: 065
  7. ESCITALOPRAM [Concomitant]
     Active Substance: ESCITALOPRAM OXALATE
     Indication: Anxiety
     Dosage: 20 MILLIGRAM, QD
     Route: 065
  8. FINASTERIDE [Concomitant]
     Active Substance: FINASTERIDE
     Indication: Product used for unknown indication
     Dosage: 1 MILLIGRAM, QD
     Route: 065
  9. HYDROXYZINE [Concomitant]
     Active Substance: HYDROXYZINE HYDROCHLORIDE
     Indication: Anxiety
     Dosage: 10 MILLIGRAM
     Route: 065
  10. METOPROLOL [Concomitant]
     Active Substance: METOPROLOL
     Indication: Hypertension
     Dosage: 50 MILLIGRAM, QD
     Route: 065
  11. MIRTAZAPINE [Concomitant]
     Active Substance: MIRTAZAPINE
     Indication: Depression
     Dosage: 75 MILLIGRAM (AT NIGHT)
     Route: 065
  12. PROGESTERONE [Concomitant]
     Active Substance: PROGESTERONE
     Indication: Transgender hormonal therapy
     Dosage: 100 MILLIGRAM, QD
     Route: 065
  13. SPIRONOLACTONE [Concomitant]
     Active Substance: SPIRONOLACTONE
     Indication: Transgender hormonal therapy
     Dosage: 100 MILLIGRAM
     Route: 065

REACTIONS (4)
  - Obstructive pancreatitis [Recovering/Resolving]
  - Pancreatitis acute [Recovering/Resolving]
  - Cholelithiasis [Recovering/Resolving]
  - Leukocytosis [Recovering/Resolving]
